FAERS Safety Report 7017662-5 (Version None)
Quarter: 2010Q3

REPORT INFORMATION
  Report Type: 
  Country: None (occurrence: None)
  Receive Date: 20100928
  Receipt Date: 20100916
  Transmission Date: 20110219
  Serious: Yes (Other)
  Sender: FDA-Public Use
  Company Number: US-PFIZER INC-2010118229

PATIENT
  Sex: Female
  Weight: 76.19 kg

DRUGS (3)
  1. XANAX [Suspect]
     Indication: ANXIETY
     Dosage: 1 MG, 4X/DAY
     Route: 048
     Dates: start: 20100103
  2. AMBIEN [Concomitant]
     Indication: SLEEP DISORDER
     Dosage: UNK
  3. TRAMADOL [Concomitant]
     Indication: DEPRESSION
     Dosage: UNK

REACTIONS (2)
  - CONVULSION [None]
  - LOSS OF CONSCIOUSNESS [None]
